FAERS Safety Report 11379003 (Version 1)
Quarter: 2015Q3

REPORT INFORMATION
  Report Type: Spontaneous
  Country: US (occurrence: US)
  Receive Date: 20150811
  Receipt Date: 20150811
  Transmission Date: 20151125
  Serious: Yes (Hospitalization, Other)
  Sender: FDA-Public Use
  Company Number: US-ELI_LILLY_AND_COMPANY-US200809000860

PATIENT
  Age: 68 Year
  Sex: Male

DRUGS (3)
  1. FLOMAX [Concomitant]
     Active Substance: TAMSULOSIN HYDROCHLORIDE
     Indication: NOCTURIA
     Dosage: 0.4 MG, UNK
     Dates: start: 2003
  2. CIALIS [Suspect]
     Active Substance: TADALAFIL
     Indication: ERECTILE DYSFUNCTION
     Dosage: 5 MG, DAILY (1/D)
     Dates: start: 20080609, end: 20080620
  3. AVAPRO [Concomitant]
     Active Substance: IRBESARTAN
     Dates: start: 2006

REACTIONS (2)
  - Chest pain [Unknown]
  - Back pain [Unknown]

NARRATIVE: CASE EVENT DATE: 200806
